FAERS Safety Report 11779919 (Version 1)
Quarter: 2015Q4

REPORT INFORMATION
  Report Type: Spontaneous
  Country: US (occurrence: US)
  Receive Date: 20151125
  Receipt Date: 20151125
  Transmission Date: 20160304
  Serious: No
  Sender: FDA-Public Use
  Company Number: US-BIOMARINAP-US-2015-108133

PATIENT
  Sex: Male
  Weight: 12.1 kg

DRUGS (1)
  1. VIMIZIM [Suspect]
     Active Substance: ELOSULFASE ALFA
     Indication: MUCOPOLYSACCHARIDOSIS IV
     Dosage: UNK UNK, QW
     Route: 042
     Dates: start: 20151013

REACTIONS (5)
  - Nasal congestion [Unknown]
  - Cough [Unknown]
  - Vomiting [Unknown]
  - Influenza like illness [Unknown]
  - Pyrexia [Unknown]
